FAERS Safety Report 6763327-4 (Version None)
Quarter: 2010Q2

REPORT INFORMATION
  Report Type: 
  Country: None (occurrence: None)
  Receive Date: 20100608
  Receipt Date: 20100608
  Transmission Date: 20101027
  Serious: No
  Sender: FDA-Public Use
  Company Number: None

PATIENT
  Age: 73 Year
  Sex: Male
  Weight: 109.3 kg

DRUGS (1)
  1. SAXAGLIPTIN [Suspect]
     Indication: DIABETES MELLITUS
     Dates: start: 20100428, end: 20100506

REACTIONS (1)
  - RASH [None]
